FAERS Safety Report 5739858-2 (Version None)
Quarter: 2008Q2

REPORT INFORMATION
  Report Type: 
  Country: None (occurrence: None)
  Receive Date: 20080516
  Receipt Date: 20080505
  Transmission Date: 20081010
  Serious: Yes (Hospitalization)
  Sender: FDA-Public Use
  Company Number: FR-JNJFOC-20080502478

PATIENT
  Sex: Male

DRUGS (8)
  1. ACETAMINOPHEN [Suspect]
     Route: 048
  2. ACETAMINOPHEN [Suspect]
     Indication: ASTHMA
     Route: 048
  3. IBUPROFENE [Suspect]
     Indication: URINARY TRACT INFECTION
     Route: 048
  4. ZITHROMAX [Suspect]
     Route: 048
  5. ZITHROMAX [Suspect]
     Indication: ASTHMA
     Route: 048
  6. AMOXICILLIN [Suspect]
     Indication: URINARY TRACT INFECTION
     Route: 048
  7. NOROXIN [Suspect]
     Indication: URINARY TRACT INFECTION
     Route: 048
  8. BIOCALYPTOL [Concomitant]
     Indication: ASTHMA
     Route: 048

REACTIONS (1)
  - PANCREATITIS ACUTE [None]
